FAERS Safety Report 24737854 (Version 1)
Quarter: 2024Q4

REPORT INFORMATION
  Report Type: Other
  Country: AU (occurrence: AU)
  Receive Date: 20241216
  Receipt Date: 20241216
  Transmission Date: 20250115
  Serious: Yes (Life-Threatening, Other)
  Sender: B BRAUN
  Company Number: AU-B.Braun Medical Inc.-2167157

PATIENT
  Age: 76 Year
  Sex: Female
  Weight: 81 kg

DRUGS (15)
  1. LIDOCAINE HYDROCHLORIDE [Suspect]
     Active Substance: LIDOCAINE HYDROCHLORIDE
     Indication: General anaesthesia
  2. ROPIVACAINE. [Suspect]
     Active Substance: ROPIVACAINE HYDROCHLORIDE
  3. POVIDONE-IODINE [Concomitant]
     Active Substance: POVIDONE-IODINE
  4. METARAMINOL [Concomitant]
     Active Substance: METARAMINOL
  5. SEVOFLURANE [Concomitant]
     Active Substance: SEVOFLURANE
  6. PROPOFOL [Concomitant]
     Active Substance: PROPOFOL
  7. IRON POLYMALTOSE [Concomitant]
     Active Substance: IRON POLYMALTOSE
  8. FUROSEMIDE [Concomitant]
     Active Substance: FUROSEMIDE
  9. SPIRONOLACTONE [Concomitant]
     Active Substance: SPIRONOLACTONE
  10. METOPROLOL [Concomitant]
     Active Substance: METOPROLOL
  11. METFORMIN [Concomitant]
     Active Substance: METFORMIN HYDROCHLORIDE
  12. LINAGLIPTIN [Concomitant]
     Active Substance: LINAGLIPTIN
  13. INSULIN GLARGINE [Concomitant]
     Active Substance: INSULIN GLARGINE
  14. CLOPIDOGREL [Concomitant]
     Active Substance: CLOPIDOGREL BISULFATE
  15. APIXABAN [Concomitant]
     Active Substance: APIXABAN

REACTIONS (3)
  - Cardio-respiratory arrest [Recovered/Resolved]
  - Off label use [Recovered/Resolved]
  - Brain stem syndrome [Recovered/Resolved]
